FAERS Safety Report 9339030 (Version 1)
Quarter: 2013Q2

REPORT INFORMATION
  Report Type: Spontaneous
  Country: US (occurrence: None)
  Receive Date: 20130606
  Receipt Date: 20130606
  Transmission Date: 20140414
  Serious: Yes (Other)
  Sender: FDA-Public Use
  Company Number: None

PATIENT
  Age: 54 Year
  Sex: Female
  Weight: 88.91 kg

DRUGS (4)
  1. SUMATRIPTAN [Suspect]
     Indication: MIGRAINE
     Dosage: STRENGTH 100 MG   QUANTITY 1 PILL  FREQUENCY  START OF MIGRAINE  BY MOUTH
     Route: 048
     Dates: start: 20110504, end: 20130506
  2. TOPIRAMATE [Concomitant]
  3. PHENOBARBITAL [Concomitant]
  4. CITRACAL [Concomitant]

REACTIONS (2)
  - Urticaria [None]
  - Product quality issue [None]
